FAERS Safety Report 7684605 (Version 8)
Quarter: 2012Q4

REPORT INFORMATION
  Report Type: 
  Country: CA (occurrence: CA)
  Receive Date: 20101129
  Receipt Date: 20121106
  Transmission Date: 20130627
  Serious: Yes (Death, Hospitalization, Other)
  Sender: FDA-Public Use
  Company Number: PHHY2009CA19062

PATIENT
  Sex: Male

DRUGS (1)
  1. SANDOSTATIN LAR [Suspect]
     Indication: METASTATIC CARCINOID TUMOUR
     Dosage: 30 mg every 4 weeks
     Route: 030
     Dates: start: 20090413

REACTIONS (14)
  - Death [Fatal]
  - Oesophageal carcinoma [Unknown]
  - Haemoptysis [Unknown]
  - Haematemesis [Unknown]
  - Eating disorder [Unknown]
  - Weight decreased [Unknown]
  - Blood pressure increased [Unknown]
  - Vomiting [Unknown]
  - Pharyngitis [Unknown]
  - Aggression [Unknown]
  - Heart rate irregular [Unknown]
  - Diarrhoea [Recovering/Resolving]
  - Injection site pain [Unknown]
  - Flatulence [Unknown]
